FAERS Safety Report 19241628 (Version 2)
Quarter: 2022Q2

REPORT INFORMATION
  Report Type: Spontaneous
  Country: SE (occurrence: SE)
  Receive Date: 20210511
  Receipt Date: 20220620
  Transmission Date: 20220721
  Serious: Yes (Hospitalization)
  Sender: FDA-Public Use
  Company Number: SE-MPA-2021-027145

PATIENT
  Age: 76 Year
  Sex: Male

DRUGS (6)
  1. OLANZAPINE [Suspect]
     Active Substance: OLANZAPINE
     Indication: Product used for unknown indication
     Dosage: 40 MILLIGRAM, IN TOTAL
     Route: 065
     Dates: start: 20210324, end: 20210324
  2. HYDROCHLOROTHIAZIDE\LOSARTAN [Suspect]
     Active Substance: HYDROCHLOROTHIAZIDE\LOSARTAN
     Indication: Product used for unknown indication
     Dosage: 4 DOSAGE FORM, 50 MG/12,5 MG
     Route: 065
     Dates: start: 20210324, end: 20210324
  3. AKINETON [Suspect]
     Active Substance: BIPERIDEN HYDROCHLORIDE
     Indication: Product used for unknown indication
     Dosage: 24 MILLIGRAM, IN TOTAL
     Route: 065
     Dates: start: 20210324, end: 20210324
  4. DIAZEPAM [Suspect]
     Active Substance: DIAZEPAM
     Indication: Product used for unknown indication
     Dosage: 16 MILLIGRAM, DAILY
     Route: 065
     Dates: start: 20210324, end: 20210324
  5. METFORMIN [Suspect]
     Active Substance: METFORMIN HYDROCHLORIDE
     Indication: Product used for unknown indication
     Dosage: 9000 MILLIGRAM, DAILY
     Route: 065
     Dates: start: 20210324, end: 20210324
  6. CITALOPRAM [Suspect]
     Active Substance: CITALOPRAM HYDROBROMIDE
     Indication: Product used for unknown indication
     Dosage: 40 MILLIGRAM, DAILY
     Route: 065
     Dates: start: 20210324, end: 20210324

REACTIONS (3)
  - Urinary retention [Recovered/Resolved]
  - Accidental overdose [Recovered/Resolved]
  - Toxicity to various agents [Recovered/Resolved]

NARRATIVE: CASE EVENT DATE: 20210324
